FAERS Safety Report 19038126 (Version 2)
Quarter: 2021Q1

REPORT INFORMATION
  Report Type: Spontaneous
  Country: US (occurrence: US)
  Receive Date: 20210322
  Receipt Date: 20210323
  Transmission Date: 20210420
  Serious: No
  Sender: FDA-Public Use
  Company Number: US-PFIZER INC-2020247917

PATIENT
  Age: 78 Year
  Sex: Female
  Weight: 80.29 kg

DRUGS (2)
  1. LYRICA CR [Suspect]
     Active Substance: PREGABALIN
     Dosage: 165 MG, 1X/DAY [NIGHTLY]
     Route: 048
  2. LYRICA CR [Suspect]
     Active Substance: PREGABALIN
     Indication: DIABETIC NEUROPATHY
     Dosage: 330 MG, 1X/DAY (TAKE 1 TAB BY MOUTH EVERY EVENING BEFORE DINNER)
     Route: 048
     Dates: start: 2015

REACTIONS (4)
  - Off label use [Unknown]
  - Feeling abnormal [Unknown]
  - Product label confusion [Unknown]
  - Product use issue [Unknown]
